FAERS Safety Report 12629565 (Version 1)
Quarter: 2016Q3

REPORT INFORMATION
  Report Type: Spontaneous
  Country: US (occurrence: US)
  Receive Date: 20160808
  Receipt Date: 20160808
  Transmission Date: 20161109
  Serious: Yes (Other)
  Sender: FDA-Public Use
  Company Number: US-PFIZER INC-2016344408

PATIENT
  Age: 50 Year
  Sex: Female

DRUGS (1)
  1. EPINEPHRINE/LIDOCAINE HYDROCHLORIDE [Suspect]
     Active Substance: EPINEPHRINE\LIDOCAINE HYDROCHLORIDE
     Indication: LOCAL ANAESTHESIA
     Dosage: 3 CC ONE TIME
     Route: 026
     Dates: start: 20160623

REACTIONS (2)
  - Injection site pain [Not Recovered/Not Resolved]
  - Injection site necrosis [Not Recovered/Not Resolved]

NARRATIVE: CASE EVENT DATE: 20160623
